FAERS Safety Report 6711837-8 (Version None)
Quarter: 2010Q2

REPORT INFORMATION
  Report Type: 
  Country: None (occurrence: None)
  Receive Date: 20100505
  Receipt Date: 20100503
  Transmission Date: 20101027
  Serious: Yes (Other)
  Sender: FDA-Public Use
  Company Number: DE-BAYER-200827100GPV

PATIENT
  Sex: Female

DRUGS (2)
  1. MIRENA [Suspect]
     Indication: CONTRACEPTION
     Route: 015
     Dates: start: 20010801, end: 20060901
  2. MIRENA [Suspect]
     Route: 015
     Dates: start: 20060901, end: 20080722

REACTIONS (8)
  - ACNE [None]
  - APATHY [None]
  - ARRHYTHMIA [None]
  - DEPRESSION [None]
  - FATIGUE [None]
  - LOSS OF LIBIDO [None]
  - PANIC ATTACK [None]
  - RESTLESSNESS [None]
